FAERS Safety Report 7488012-5 (Version None)
Quarter: 2011Q2

REPORT INFORMATION
  Report Type: 
  Country: None (occurrence: None)
  Receive Date: 20110518
  Receipt Date: 20110512
  Transmission Date: 20111010
  Serious: No
  Sender: FDA-Public Use
  Company Number: US-PFIZER INC-2011102723

PATIENT
  Sex: Female
  Weight: 49.887 kg

DRUGS (3)
  1. ADVIL PM [Suspect]
     Indication: ARTHRITIS
     Dosage: 400 MG, 1X/DAY
     Route: 048
     Dates: start: 20110511, end: 20110512
  2. ADVIL PM [Suspect]
     Indication: SLEEP DISORDER
  3. PRAVASTATIN [Concomitant]
     Indication: BLOOD CHOLESTEROL INCREASED
     Dosage: 40 MG, 1X/DAY
     Route: 048

REACTIONS (4)
  - BURNING SENSATION [None]
  - FATIGUE [None]
  - PAIN [None]
  - DISCOMFORT [None]
